FAERS Safety Report 5037374-7 (Version None)
Quarter: 2006Q2

REPORT INFORMATION
  Report Type: 
  Country: None (occurrence: None)
  Receive Date: 20060622
  Receipt Date: 20060606
  Transmission Date: 20061013
  Serious: Yes (Hospitalization)
  Sender: FDA-Public Use
  Company Number: 2006BI003358

PATIENT
  Age: 58 Year
  Sex: Female

DRUGS (2)
  1. AVONEX [Suspect]
     Indication: MULTIPLE SCLEROSIS
     Dosage: 30 UG; QW; IM
     Route: 030
     Dates: start: 19991001
  2. AVONEX [Suspect]
     Indication: MULTIPLE SCLEROSIS
     Dosage: 30 UG; QW; IM
     Route: 030

REACTIONS (14)
  - COMA [None]
  - CONDITION AGGRAVATED [None]
  - CONFUSIONAL STATE [None]
  - CONVULSION [None]
  - FALL [None]
  - FEAR [None]
  - FIBULA FRACTURE [None]
  - MALAISE [None]
  - MULTIPLE SCLEROSIS [None]
  - MYOCARDIAL INFARCTION [None]
  - PNEUMONIA [None]
  - PRURITUS [None]
  - PULMONARY THROMBOSIS [None]
  - TIBIA FRACTURE [None]
